FAERS Safety Report 9187144 (Version 2)
Quarter: 2013Q1

REPORT INFORMATION
  Report Type: Spontaneous
  Country: US (occurrence: US)
  Receive Date: 20130325
  Receipt Date: 20130329
  Transmission Date: 20140127
  Serious: Yes (Death, Hospitalization)
  Sender: FDA-Public Use
  Company Number: US-PFIZER INC-2013092610

PATIENT
  Age: 50 Year
  Sex: Female

DRUGS (1)
  1. REVATIO [Suspect]
     Indication: PULMONARY HYPERTENSION
     Dosage: 20MG, 3X/DAY
     Dates: start: 2011

REACTIONS (3)
  - Cardiac failure congestive [Fatal]
  - Pulmonary hypertension [Fatal]
  - Pleural effusion [Unknown]
